FAERS Safety Report 8321474-X (Version None)
Quarter: 2012Q2

REPORT INFORMATION
  Report Type: 
  Country: None (occurrence: None)
  Receive Date: 20120430
  Receipt Date: 20120430
  Transmission Date: 20120825
  Serious: Yes (Other)
  Sender: FDA-Public Use
  Company Number: None

PATIENT
  Age: 64 Year
  Sex: Male
  Weight: 95.254 kg

DRUGS (2)
  1. PEG-3350 [Suspect]
     Indication: COLONOSCOPY
     Dosage: 2L
     Route: 048
     Dates: start: 20120424, end: 20120425
  2. PEG-3350 [Concomitant]

REACTIONS (1)
  - BLOOD PRESSURE INCREASED [None]
